FAERS Safety Report 6009099-2 (Version None)
Quarter: 2008Q4

REPORT INFORMATION
  Report Type: 
  Country: None (occurrence: None)
  Receive Date: 20081216
  Receipt Date: 20081203
  Transmission Date: 20090506
  Serious: Yes (Hospitalization)
  Sender: FDA-Public Use
  Company Number: DSA_32894_2008

PATIENT
  Age: 80 Year
  Sex: Female

DRUGS (3)
  1. ENALAPRIL MALEATE [Suspect]
     Indication: DRUG USE FOR UNKNOWN INDICATION
     Dosage: 10 MG QD ORAL
     Route: 048
  2. DIGOXIN [Concomitant]
  3. SPIRONOLACTONE [Concomitant]

REACTIONS (8)
  - ALTERED STATE OF CONSCIOUSNESS [None]
  - ANOREXIA [None]
  - AV DISSOCIATION [None]
  - BLOOD CREATININE INCREASED [None]
  - DEHYDRATION [None]
  - DIALYSIS [None]
  - HYPERKALAEMIA [None]
  - NASOPHARYNGITIS [None]
